FAERS Safety Report 5714539-X (Version None)
Quarter: 2008Q2

REPORT INFORMATION
  Report Type: 
  Country: None (occurrence: None)
  Receive Date: 20080423
  Receipt Date: 20080414
  Transmission Date: 20081010
  Serious: Yes (Hospitalization, Other)
  Sender: FDA-Public Use
  Company Number: US-JNJFOC-20071001406

PATIENT
  Age: 77 Year
  Sex: Female

DRUGS (11)
  1. RISPERDAL CONSTA [Suspect]
     Route: 030
  2. RISPERDAL CONSTA [Suspect]
     Route: 030
  3. RISPERDAL CONSTA [Suspect]
     Indication: DRUG USE FOR UNKNOWN INDICATION
     Route: 030
  4. CLONOPIN [Concomitant]
     Indication: SLEEP DISORDER
  5. LABETOLOL [Concomitant]
  6. ISOSORB [Concomitant]
  7. FUROSIMIDE [Concomitant]
  8. KLOR-CON [Concomitant]
  9. REQUIP [Concomitant]
  10. CLONAZEPAM [Concomitant]
  11. SYNTHROID [Concomitant]

REACTIONS (9)
  - ABDOMINAL DISTENSION [None]
  - BLOOD GLUCOSE INCREASED [None]
  - CATARACT [None]
  - CONFUSIONAL STATE [None]
  - HEART RATE IRREGULAR [None]
  - HYPERLIPIDAEMIA [None]
  - INJECTION SITE NERVE DAMAGE [None]
  - PNEUMONIA [None]
  - RESTLESS LEGS SYNDROME [None]
